FAERS Safety Report 24053996 (Version 4)
Quarter: 2024Q4

REPORT INFORMATION
  Report Type: Spontaneous
  Country: US (occurrence: US)
  Receive Date: 20240705
  Receipt Date: 20241126
  Transmission Date: 20250115
  Serious: No
  Sender: SANOFI AVENTIS
  Company Number: US-SA-SAC20240701000095

PATIENT
  Age: 21 Year
  Sex: Male

DRUGS (3)
  1. DUPIXENT [Suspect]
     Active Substance: DUPILUMAB
     Indication: Eosinophilic oesophagitis
     Dosage: 300 MG, QW
     Route: 058
     Dates: start: 20240403
  2. CLONIDINE [Concomitant]
     Active Substance: CLONIDINE
  3. TAZORAC [Concomitant]
     Active Substance: TAZAROTENE

REACTIONS (11)
  - Vomiting [Unknown]
  - Influenza [Unknown]
  - Impaired quality of life [Not Recovered/Not Resolved]
  - Dysphagia [Unknown]
  - Eye colour change [Unknown]
  - Throat irritation [Unknown]
  - Conjunctivitis [Unknown]
  - Injection site erythema [Unknown]
  - Therapeutic response decreased [Unknown]
  - Memory impairment [Unknown]
  - Product dose omission in error [Recovered/Resolved]

NARRATIVE: CASE EVENT DATE: 20240101
